FAERS Safety Report 12836764 (Version 1)
Quarter: 2016Q4

REPORT INFORMATION
  Report Type: Report from Study
  Country: US (occurrence: US)
  Receive Date: 20161011
  Receipt Date: 20161011
  Transmission Date: 20170207
  Serious: Yes (Other)
  Sender: FDA-Public Use
  Company Number: PHHY2016US139752

PATIENT
  Age: 49 Year
  Sex: Male

DRUGS (1)
  1. DICLOFENAC RETARD [Suspect]
     Active Substance: DICLOFENAC
     Indication: PRODUCT USED FOR UNKNOWN INDICATION
     Route: 065

REACTIONS (2)
  - Dermatitis allergic [Unknown]
  - Renal failure [Unknown]
